FAERS Safety Report 19001433 (Version 1)
Quarter: 2021Q1

REPORT INFORMATION
  Report Type: Spontaneous
  Country: IT (occurrence: IT)
  Receive Date: 20210311
  Receipt Date: 20210311
  Transmission Date: 20210420
  Serious: Yes (Hospitalization, Other)
  Sender: FDA-Public Use
  Company Number: IT-AMGEN-ITASP2021034300

PATIENT
  Age: 40 Year
  Sex: Male

DRUGS (5)
  1. IRINOTECAN [Concomitant]
     Active Substance: IRINOTECAN
     Dosage: UNK
  2. FOLINIC ACID [Concomitant]
     Active Substance: LEUCOVORIN
     Dosage: UNK
  3. OXALIPLATIN. [Concomitant]
     Active Substance: OXALIPLATIN
     Dosage: UNK
  4. PANITUMUMAB [Suspect]
     Active Substance: PANITUMUMAB
     Indication: ADENOCARCINOMA OF COLON
     Dosage: UNK
     Route: 065
  5. FLUOROURACIL. [Concomitant]
     Active Substance: FLUOROURACIL
     Dosage: UNK

REACTIONS (10)
  - Small intestinal perforation [Unknown]
  - Lymphadenopathy [Unknown]
  - Cholangitis [Recovered/Resolved]
  - Steal syndrome [Unknown]
  - Blood bilirubin increased [Unknown]
  - Hepatic failure [Unknown]
  - Encephalopathy [Unknown]
  - Portal vein thrombosis [Unknown]
  - Blood fibrinogen decreased [Unknown]
  - Cholestasis [Recovering/Resolving]
